FAERS Safety Report 20134180 (Version 2)
Quarter: 2021Q4

REPORT INFORMATION
  Report Type: Report from Study
  Country: CO (occurrence: CO)
  Receive Date: 20211201
  Receipt Date: 20211206
  Transmission Date: 20220304
  Serious: Yes (Hospitalization)
  Sender: FDA-Public Use
  Company Number: CO-NOVARTISPH-NVSC2021CO268436

PATIENT
  Sex: Male
  Weight: 84 kg

DRUGS (1)
  1. ELTROMBOPAG OLAMINE [Suspect]
     Active Substance: ELTROMBOPAG OLAMINE
     Indication: Immune thrombocytopenia
     Dosage: UNK, Q12H
     Route: 048

REACTIONS (7)
  - Hypoacusis [Unknown]
  - Illness [Unknown]
  - Aphasia [Unknown]
  - Discouragement [Unknown]
  - Platelet count decreased [Recovered/Resolved]
  - Platelet count abnormal [Recovered/Resolved]
  - Inappropriate schedule of product administration [Unknown]
